FAERS Safety Report 12333806 (Version 1)
Quarter: 2016Q2

REPORT INFORMATION
  Report Type: Spontaneous
  Country: US (occurrence: US)
  Receive Date: 20160504
  Receipt Date: 20160504
  Transmission Date: 20160815
  Serious: No
  Sender: FDA-Public Use
  Company Number: US-ROCHE-1679553

PATIENT
  Sex: Male

DRUGS (6)
  1. ESBRIET [Suspect]
     Active Substance: PIRFENIDONE
     Indication: IDIOPATHIC PULMONARY FIBROSIS
     Dosage: NINE CAPSULES A DAY
     Route: 048
     Dates: start: 201407
  2. SINGULAIR [Concomitant]
     Active Substance: MONTELUKAST SODIUM
     Indication: SEASONAL ALLERGY
  3. FLONASE (UNITED STATES) [Concomitant]
     Indication: HYPERSENSITIVITY
     Dosage: ONE TO TWO PUFFS EACH NOSTRIL PER DAY
     Route: 045
  4. OMEPRAZOLE. [Concomitant]
     Active Substance: OMEPRAZOLE
     Indication: GASTROOESOPHAGEAL REFLUX DISEASE
     Route: 048
  5. CLARITIN [Concomitant]
     Active Substance: LORATADINE
     Indication: SEASONAL ALLERGY
  6. LAMISIL [Concomitant]
     Active Substance: TERBINAFINE HYDROCHLORIDE
     Indication: ONYCHOMYCOSIS

REACTIONS (3)
  - Cough [Unknown]
  - Diarrhoea [Not Recovered/Not Resolved]
  - Gastrooesophageal reflux disease [Unknown]
